FAERS Safety Report 9268637 (Version 2)
Quarter: 2014Q2

REPORT INFORMATION
  Report Type: Report from Study
  Country: US (occurrence: US)
  Receive Date: 20130502
  Receipt Date: 20140623
  Transmission Date: 20141212
  Serious: Yes (Hospitalization, Other)
  Sender: FDA-Public Use
  Company Number: US-ALEXION-A201300078

PATIENT
  Age: 92 Year
  Sex: Female

DRUGS (2)
  1. SOLIRIS 300MG [Suspect]
     Indication: PAROXYSMAL NOCTURNAL HAEMOGLOBINURIA
     Dosage: UNK
     Route: 042
  2. COUMADIN [Concomitant]

REACTIONS (5)
  - Gastrointestinal haemorrhage [Unknown]
  - Transfusion [Unknown]
  - Myelodysplastic syndrome [Unknown]
  - Epistaxis [Unknown]
  - Coagulation time prolonged [Unknown]
